FAERS Safety Report 12059400 (Version 1)
Quarter: 2016Q1

REPORT INFORMATION
  Report Type: Report from Study
  Country: CN (occurrence: CN)
  Receive Date: 20160210
  Receipt Date: 20160210
  Transmission Date: 20160526
  Serious: Yes (Death, Life-Threatening, Hospitalization)
  Sender: FDA-Public Use
  Company Number: CN-ACTAVIS-2016-01895

PATIENT
  Age: 39 Year
  Sex: Female
  Weight: 50 kg

DRUGS (13)
  1. REVATIO [Concomitant]
     Active Substance: SILDENAFIL CITRATE
     Indication: PULMONARY ARTERIAL HYPERTENSION
     Dosage: 60 MG, DAILY
     Route: 065
  2. SINBABY [Concomitant]
     Indication: RASH
     Route: 065
  3. DIGOXIN. [Concomitant]
     Active Substance: DIGOXIN
     Indication: RIGHT VENTRICULAR FAILURE
     Dosage: 0.125 MG, DAILY
     Route: 065
  4. ALLEGRA [Concomitant]
     Active Substance: FEXOFENADINE HYDROCHLORIDE
     Indication: RASH
     Dosage: 120 MG, DAILY
     Route: 065
  5. D-PENICILLAMINE [Concomitant]
     Active Substance: PENICILLAMINE
     Indication: RAYNAUD^S PHENOMENON
  6. NAKASSER [Concomitant]
     Indication: TACHYCARDIA
     Dosage: 90 MG, DAILY
     Route: 065
  7. GINKGO BILOBA EXTRACT [Concomitant]
     Active Substance: GINKGO
     Indication: SCLERODERMA
     Dosage: 19.2 MG, DAILY
     Route: 065
  8. GINKGO BILOBA EXTRACT [Concomitant]
     Active Substance: GINKGO
     Indication: RAYNAUD^S PHENOMENON
  9. SPIRONOLACTONE. [Suspect]
     Active Substance: SPIRONOLACTONE
     Indication: OEDEMA
     Dosage: 50 MG, DAILY
     Route: 065
     Dates: start: 20130518
  10. TREPROSTINIL [Suspect]
     Active Substance: TREPROSTINIL
     Indication: PULMONARY ARTERIAL HYPERTENSION
     Dosage: 2.5 MG, TID
     Route: 048
     Dates: start: 20150417
  11. ROSIS [Suspect]
     Active Substance: FUROSEMIDE
     Indication: OEDEMA
     Dosage: 40 MG, DAILY
     Route: 065
     Dates: start: 20130518
  12. D-PENICILLAMINE [Concomitant]
     Active Substance: PENICILLAMINE
     Indication: SCLERODERMA
     Dosage: 300 MG, DAILY
     Route: 065
  13. DICLOFENAC [Concomitant]
     Active Substance: DICLOFENAC
     Indication: HEADACHE
     Dosage: 75 MG, DAILY
     Route: 065

REACTIONS (3)
  - Hypokalaemia [Recovered/Resolved]
  - Cardiac failure [Fatal]
  - Syncope [Recovered/Resolved]

NARRATIVE: CASE EVENT DATE: 20150903
